FAERS Safety Report 13987546 (Version 2)
Quarter: 2018Q4

REPORT INFORMATION
  Report Type: Report from Study
  Country: DE (occurrence: DE)
  Receive Date: 20170919
  Receipt Date: 20181016
  Transmission Date: 20190204
  Serious: Yes (Hospitalization)
  Sender: FDA-Public Use
  Company Number: DE-SA-2017SA169335

PATIENT
  Age: 37 Year
  Sex: Female

DRUGS (1)
  1. ALEMTUZUMAB [Suspect]
     Active Substance: ALEMTUZUMAB
     Indication: MULTIPLE SCLEROSIS
     Dosage: 12 MG,UNK
     Route: 041
     Dates: start: 201706

REACTIONS (6)
  - Fatigue [Not Recovered/Not Resolved]
  - Bronchitis [Recovered/Resolved]
  - Nasopharyngitis [Recovering/Resolving]
  - Cough [Recovered/Resolved]
  - Abdominal pain upper [Recovered/Resolved]
  - Paraesthesia [Not Recovered/Not Resolved]

NARRATIVE: CASE EVENT DATE: 201706
